FAERS Safety Report 20006766 (Version 3)
Quarter: 2022Q2

REPORT INFORMATION
  Report Type: Report from Study
  Country: US (occurrence: US)
  Receive Date: 20211028
  Receipt Date: 20220412
  Transmission Date: 20220720
  Serious: Yes (Life-Threatening, Hospitalization)
  Sender: FDA-Public Use
  Company Number: US-JNJFOC-20211044020

PATIENT
  Age: 12 Year
  Sex: Male
  Weight: 55.6 kg

DRUGS (6)
  1. INFLIXIMAB [Suspect]
     Active Substance: INFLIXIMAB
     Indication: Inflammatory bowel disease
     Route: 042
     Dates: start: 20180412
  2. INFLIXIMAB [Suspect]
     Active Substance: INFLIXIMAB
     Route: 042
     Dates: start: 20210817
  3. INFLIXIMAB [Suspect]
     Active Substance: INFLIXIMAB
     Route: 042
     Dates: start: 20211004
  4. PREDNISONE [Concomitant]
     Active Substance: PREDNISONE
     Indication: Product used for unknown indication
     Route: 065
     Dates: start: 20211017
  5. OMEPRAZOLE [Concomitant]
     Active Substance: OMEPRAZOLE
     Indication: Product used for unknown indication
     Route: 065
     Dates: end: 20211007
  6. PRILOSEC [Concomitant]
     Active Substance: OMEPRAZOLE MAGNESIUM
     Indication: Product used for unknown indication
     Route: 065

REACTIONS (2)
  - Choking [Recovered/Resolved]
  - Eosinophilic oesophagitis [Recovered/Resolved]

NARRATIVE: CASE EVENT DATE: 20210912
